FAERS Safety Report 9019400 (Version 1)
Quarter: 2013Q1

REPORT INFORMATION
  Report Type: Spontaneous
  Country: NL (occurrence: NL)
  Receive Date: 20130118
  Receipt Date: 20130118
  Transmission Date: 20140127
  Serious: Yes (Other)
  Sender: FDA-Public Use
  Company Number: NL-009507513-1301NLD008882

PATIENT
  Age: 73 Year
  Sex: Female

DRUGS (1)
  1. SIMVASTATIN [Suspect]
     Route: 048

REACTIONS (5)
  - Corneal transplant [Unknown]
  - Angioplasty [Unknown]
  - Cardiac pacemaker insertion [Unknown]
  - Fibromyalgia [Unknown]
  - Intraocular pressure increased [Unknown]
